FAERS Safety Report 5676410-1 (Version None)
Quarter: 2008Q1

REPORT INFORMATION
  Report Type: 
  Country: None (occurrence: None)
  Receive Date: 20080321
  Receipt Date: 20080311
  Transmission Date: 20080703
  Serious: Yes (Hospitalization)
  Sender: FDA-Public Use
  Company Number: FR-PFIZER INC-2008023693

PATIENT
  Sex: Female

DRUGS (13)
  1. DOXORUBICIN HCL [Suspect]
     Indication: PERIPHERAL T-CELL LYMPHOMA UNSPECIFIED
  2. METHOTREXATE [Suspect]
     Indication: PERIPHERAL T-CELL LYMPHOMA UNSPECIFIED
  3. VINDESINE [Suspect]
     Indication: PERIPHERAL T-CELL LYMPHOMA UNSPECIFIED
  4. CYCLOPHOSPHAMIDE [Suspect]
     Indication: PERIPHERAL T-CELL LYMPHOMA UNSPECIFIED
  5. MESNA [Suspect]
     Indication: PERIPHERAL T-CELL LYMPHOMA UNSPECIFIED
  6. DARBEPOETIN ALFA [Concomitant]
  7. BLEOMYCIN SULFATE [Concomitant]
  8. METHYLPREDNISOLONE [Concomitant]
  9. VALACYCLOVIR [Concomitant]
  10. SULFAMETHOXAZOLE [Concomitant]
  11. FOLINIC ACID [Concomitant]
  12. LENOGRASTIM [Concomitant]
  13. DAPSONE [Concomitant]

REACTIONS (1)
  - TOXIC SKIN ERUPTION [None]
